FAERS Safety Report 12866543 (Version 2)
Quarter: 2017Q4

REPORT INFORMATION
  Report Type: Spontaneous
  Country: US (occurrence: US)
  Receive Date: 20161020
  Receipt Date: 20171018
  Transmission Date: 20180320
  Serious: No
  Sender: FDA-Public Use
  Company Number: US-BAUSCH-BL-2016-018172

PATIENT
  Age: 48 Year
  Sex: Female
  Weight: 68.03 kg

DRUGS (2)
  1. BUPROPION. [Suspect]
     Active Substance: BUPROPION
     Indication: DEPRESSION
     Route: 048
     Dates: start: 2007
  2. BUPROPION SR [Suspect]
     Active Substance: BUPROPION HYDROCHLORIDE
     Indication: DEPRESSION
     Route: 048
     Dates: start: 2007

REACTIONS (4)
  - Sleep disorder [Unknown]
  - Pruritus [Unknown]
  - Aphasia [Unknown]
  - Drug ineffective [Unknown]
